FAERS Safety Report 20077649 (Version 2)
Quarter: 2021Q4

REPORT INFORMATION
  Report Type: Spontaneous
  Country: BR (occurrence: BR)
  Receive Date: 20211116
  Receipt Date: 20211118
  Transmission Date: 20220303
  Serious: Yes (Other)
  Sender: FDA-Public Use
  Company Number: BR-ANVISA-300078780

PATIENT
  Age: 28 Year
  Sex: Male
  Weight: 75 kg

DRUGS (2)
  1. DAPTOMYCIN [Suspect]
     Active Substance: DAPTOMYCIN
     Indication: Infection
     Dosage: 500 MILLIGRAM, Q12H (1 EVERY 12 HOURS)(SOLUTION/INTRAVENOUS INFUSION)
     Route: 042
     Dates: start: 20210617, end: 20210628
  2. MEROPENEM [Suspect]
     Active Substance: MEROPENEM
     Indication: Infection
     Dosage: 2 GRAM, Q8H (4 EVERY 8 HOURS)(SOLUTION/INTRAVENOUS INFUSION)
     Route: 042
     Dates: start: 20210615, end: 20210629

REACTIONS (1)
  - Drug-induced liver injury [Recovered/Resolved]

NARRATIVE: CASE EVENT DATE: 20210628
